FAERS Safety Report 6026968-8 (Version None)
Quarter: 2009Q1

REPORT INFORMATION
  Report Type: 
  Country: None (occurrence: None)
  Receive Date: 20090105
  Receipt Date: 20081225
  Transmission Date: 20090719
  Serious: Yes (Other)
  Sender: FDA-Public Use
  Company Number: PHHY2008BR33272

PATIENT
  Age: 59 Year
  Sex: Male
  Weight: 70 kg

DRUGS (2)
  1. LUDIOMIL [Suspect]
     Indication: DEPRESSION
     Dosage: 25MG, 2 TABLETS/DAY
     Route: 048
     Dates: start: 19960101
  2. BROMAZEPAM [Suspect]
     Indication: DEPRESSION
     Dosage: 6MG, 2 TABLETS
     Route: 048
     Dates: start: 19960101

REACTIONS (1)
  - AMNESIA [None]
